FAERS Safety Report 11021590 (Version 2)
Quarter: 2023Q4

REPORT INFORMATION
  Report Type: Spontaneous
  Country: FR (occurrence: FR)
  Receive Date: 20150413
  Receipt Date: 20231030
  Transmission Date: 20240109
  Serious: Yes (Death, Hospitalization)
  Sender: FDA-Public Use
  Company Number: FR-BAYER-2015-127997

PATIENT
  Age: 58 Year
  Sex: Male

DRUGS (22)
  1. CIPROFLOXACIN [Suspect]
     Active Substance: CIPROFLOXACIN
     Indication: Proteus test positive
     Dosage: FROM D10 TO D39
  2. CIPROFLOXACIN [Suspect]
     Active Substance: CIPROFLOXACIN
     Indication: Culture stool positive
  3. AMIKACIN [Suspect]
     Active Substance: AMIKACIN
     Indication: Pyrexia
     Dosage: D24 TO D39
  4. AMIKACIN [Suspect]
     Active Substance: AMIKACIN
     Indication: Proteus test positive
  5. IMIPENEM [Suspect]
     Active Substance: IMIPENEM
     Indication: Pyrexia
     Dosage: D24 TO D39
  6. CEFTAZIDIME [Suspect]
     Active Substance: CEFTAZIDIME
     Indication: Pyrexia
     Dosage: D13 TO D24
  7. LENOGRASTIM [Concomitant]
     Active Substance: LENOGRASTIM
     Indication: Bone marrow conditioning regimen
     Dosage: FROM D1 TO D4
  8. FLUDARABINE [Concomitant]
     Active Substance: FLUDARABINE PHOSPHATE
     Indication: Chemotherapy
     Dosage: FROM D1 TO D4
  9. FLUDARABINE [Concomitant]
     Active Substance: FLUDARABINE PHOSPHATE
     Indication: Chronic myeloid leukaemia
  10. CYTARABINE [Concomitant]
     Active Substance: CYTARABINE
     Indication: Chemotherapy
     Dosage: FROM D1 TO D4
  11. CYTARABINE [Concomitant]
     Active Substance: CYTARABINE
     Indication: Chronic myeloid leukaemia
  12. AMSACRINE [Concomitant]
     Active Substance: AMSACRINE
     Indication: Chemotherapy
     Dosage: FROM D1 TO D4
  13. AMSACRINE [Concomitant]
     Active Substance: AMSACRINE
     Indication: Chronic myeloid leukaemia
  14. CYCLOPHOSPHAMIDE [Concomitant]
     Active Substance: CYCLOPHOSPHAMIDE
     Indication: Bone marrow conditioning regimen
     Dosage: ON D9 AND D10
  15. LAPINE T-LYMPHOCYTE IMMUNE GLOBULIN [Concomitant]
     Active Substance: LAPINE T-LYMPHOCYTE IMMUNE GLOBULIN
     Indication: Bone marrow conditioning regimen
     Dosage: ON D9
  16. LAPINE T-LYMPHOCYTE IMMUNE GLOBULIN [Concomitant]
     Active Substance: LAPINE T-LYMPHOCYTE IMMUNE GLOBULIN
     Indication: Allogenic stem cell transplantation
  17. MYCOPHENOLATE MOFETIL [Concomitant]
     Active Substance: MYCOPHENOLATE MOFETIL
     Indication: Prophylaxis against graft versus host disease
     Dosage: FROM D12
  18. MYCOPHENOLATE MOFETIL [Concomitant]
     Active Substance: MYCOPHENOLATE MOFETIL
     Indication: Allogenic stem cell transplantation
  19. MYCOPHENOLATE MOFETIL [Concomitant]
     Active Substance: MYCOPHENOLATE MOFETIL
     Indication: Prophylaxis against graft versus host disease
  20. CYCLOSPORINE [Concomitant]
     Active Substance: CYCLOSPORINE
     Indication: Prophylaxis against graft versus host disease
     Dosage: FROM D11
  21. CYCLOSPORINE [Concomitant]
     Active Substance: CYCLOSPORINE
     Indication: Stem cell transplant
  22. PIPERACILLIN [Suspect]
     Active Substance: PIPERACILLIN
     Indication: Pyrexia

REACTIONS (15)
  - Clostridium difficile colitis [Fatal]
  - Acute graft versus host disease in intestine [Fatal]
  - Bronchopulmonary aspergillosis [Fatal]
  - Multiple organ dysfunction syndrome [Fatal]
  - Hypoxia [Fatal]
  - Large intestine infection [Fatal]
  - Death [Fatal]
  - Pyrexia [Fatal]
  - Dyspnoea [Fatal]
  - Diarrhoea [Fatal]
  - Rash erythematous [Fatal]
  - Aspergillus infection [Fatal]
  - Hallucination [Fatal]
  - Vomiting [Fatal]
  - Dermatitis infected [Fatal]
